FAERS Safety Report 10099784 (Version 1)
Quarter: 2014Q2

REPORT INFORMATION
  Report Type: Spontaneous
  Country: US (occurrence: None)
  Receive Date: 20140422
  Receipt Date: 20140422
  Transmission Date: 20141212
  Serious: No
  Sender: FDA-Public Use
  Company Number: None

PATIENT
  Age: 80 Year
  Sex: Male
  Weight: 111.13 kg

DRUGS (9)
  1. CLOPIDOGREL [Suspect]
     Route: 048
  2. ATORVASTATIN [Concomitant]
  3. FUROSEMIDE [Concomitant]
  4. PROSCAR [Concomitant]
  5. INSULIN DETEMIR [Concomitant]
  6. ISOSORBIDE [Concomitant]
  7. JANUVIA [Concomitant]
  8. VALACYCLOVIR [Concomitant]
  9. WARFARIN [Concomitant]

REACTIONS (3)
  - Rash [None]
  - Hypersensitivity [None]
  - Product substitution issue [None]
